FAERS Safety Report 11702383 (Version 2)
Quarter: 2015Q4

REPORT INFORMATION
  Report Type: Spontaneous
  Country: US (occurrence: US)
  Receive Date: 20151105
  Receipt Date: 20151109
  Transmission Date: 20160304
  Serious: Yes (Other)
  Sender: FDA-Public Use
  Company Number: US-SA-2015SA172639

PATIENT
  Sex: Male

DRUGS (14)
  1. NOVOLOG [Concomitant]
     Active Substance: INSULIN ASPART
  2. LANTUS SOLOSTAR [Suspect]
     Active Substance: INSULIN GLARGINE
     Indication: TYPE 2 DIABETES MELLITUS
     Dosage: DOSE:55 UNIT(S)
     Route: 065
     Dates: start: 201307
  3. SOLOSTAR [Suspect]
     Active Substance: DEVICE
     Indication: TYPE 2 DIABETES MELLITUS
     Dates: start: 201307
  4. LANTUS SOLOSTAR [Suspect]
     Active Substance: INSULIN GLARGINE
     Indication: TYPE 2 DIABETES MELLITUS
     Dosage: DOSE:55 UNIT(S)
     Route: 065
     Dates: start: 201307
  5. SOLOSTAR [Suspect]
     Active Substance: DEVICE
     Indication: TYPE 2 DIABETES MELLITUS
     Dates: start: 201307
  6. SOLOSTAR [Concomitant]
     Active Substance: DEVICE
     Dates: end: 201501
  7. LANTUS SOLOSTAR [Suspect]
     Active Substance: INSULIN GLARGINE
     Indication: TYPE 2 DIABETES MELLITUS
     Dosage: DOSE:55 UNIT(S)
     Route: 065
     Dates: start: 201307
  8. COUMADIN [Concomitant]
     Active Substance: WARFARIN SODIUM
  9. XARELTO [Concomitant]
     Active Substance: RIVAROXABAN
  10. ELIQUIS [Concomitant]
     Active Substance: APIXABAN
  11. LANTUS SOLOSTAR [Suspect]
     Active Substance: INSULIN GLARGINE
     Indication: TYPE 2 DIABETES MELLITUS
     Dosage: DOSE:55 UNIT(S)
     Route: 065
     Dates: start: 201307
  12. SOLOSTAR [Suspect]
     Active Substance: DEVICE
     Indication: TYPE 2 DIABETES MELLITUS
     Dates: start: 201307
  13. SOLOSTAR [Suspect]
     Active Substance: DEVICE
     Indication: TYPE 2 DIABETES MELLITUS
     Dates: start: 201307
  14. APIDRA SOLOSTAR [Suspect]
     Active Substance: INSULIN GLULISINE
     Route: 065
     Dates: end: 201501

REACTIONS (10)
  - Amyloidosis [Unknown]
  - Pulmonary embolism [Unknown]
  - Abdominal discomfort [Unknown]
  - Anaemia [Unknown]
  - Lung disorder [Unknown]
  - Paraproteinaemia [Unknown]
  - Asthenia [Unknown]
  - Injury associated with device [Unknown]
  - Glycosylated haemoglobin increased [Not Recovered/Not Resolved]
  - Wrong technique in product usage process [Unknown]

NARRATIVE: CASE EVENT DATE: 201507
